FAERS Safety Report 23133899 (Version 1)
Quarter: 2023Q4

REPORT INFORMATION
  Report Type: Spontaneous
  Country: BR (occurrence: BR)
  Receive Date: 20231101
  Receipt Date: 20231101
  Transmission Date: 20240110
  Serious: Yes (Death, Other)
  Sender: FDA-Public Use
  Company Number: BR-AMGEN-BRASP2023191240

PATIENT

DRUGS (7)
  1. RITUXIMAB [Suspect]
     Active Substance: RITUXIMAB
     Indication: Chronic lymphocytic leukaemia
     Dosage: 375 MILLIGRAM PER SQUARE METRE, IN CYCLE 1
     Route: 042
  2. RITUXIMAB [Suspect]
     Active Substance: RITUXIMAB
     Dosage: 500 MILLIGRAM PER SQUARE METRE, IN CYCLES 2 TO 6
     Route: 042
  3. KETOCONAZOLE [Suspect]
     Active Substance: KETOCONAZOLE
     Indication: Chronic lymphocytic leukaemia
     Dosage: 200 MILLIGRAM, QD (UNTIL COMPLETION OF CYCLE 12 OR CYCLE 24)
     Route: 065
  4. VENETOCLAX [Suspect]
     Active Substance: VENETOCLAX
     Indication: Chronic lymphocytic leukaemia
     Dosage: 20 MILLIGRAM (STARTING ON DAY 22 OF CYCLE 1)
     Route: 065
  5. VENETOCLAX [Suspect]
     Active Substance: VENETOCLAX
     Dosage: 50 MILLIGRAM
     Route: 065
  6. VENETOCLAX [Suspect]
     Active Substance: VENETOCLAX
     Dosage: 100 MILLIGRAM
     Route: 065
  7. VENETOCLAX [Suspect]
     Active Substance: VENETOCLAX
     Dosage: 200 MILLIGRAM
     Route: 065

REACTIONS (8)
  - Chronic lymphocytic leukaemia [Unknown]
  - Intestinal haemorrhage [Fatal]
  - Acute myeloid leukaemia [Fatal]
  - Myocardial infarction [Fatal]
  - Death [Fatal]
  - Hepatotoxicity [Unknown]
  - Neutropenia [Unknown]
  - Therapy partial responder [Unknown]
